FAERS Safety Report 9579256 (Version 1)
Quarter: 2013Q4

REPORT INFORMATION
  Report Type: Spontaneous
  Country: US (occurrence: US)
  Receive Date: 20131001
  Receipt Date: 20131001
  Transmission Date: 20140711
  Serious: No
  Sender: FDA-Public Use
  Company Number: US-AMGEN-USASP2013016745

PATIENT
  Age: 60 Year
  Sex: Male

DRUGS (1)
  1. ENBREL [Suspect]
     Indication: RHEUMATOID ARTHRITIS
     Dosage: 50 MG, QWK
     Dates: start: 20070101

REACTIONS (5)
  - Bunion [Recovered/Resolved]
  - Rheumatoid nodule [Recovered/Resolved]
  - Hypersensitivity [Not Recovered/Not Resolved]
  - Sinus polyp [Not Recovered/Not Resolved]
  - Sinusitis [Not Recovered/Not Resolved]
